FAERS Safety Report 8863340 (Version 1)
Quarter: 2012Q4

REPORT INFORMATION
  Report Type: 
  Country: US (occurrence: US)
  Receive Date: 20121025
  Receipt Date: 20121025
  Transmission Date: 20130627
  Serious: Yes (Other)
  Sender: FDA-Public Use
  Company Number: US-GLAXOSMITHKLINE-A0997686A

PATIENT
  Age: 17 Year
  Sex: Female

DRUGS (3)
  1. LAMICTAL XR [Suspect]
     Indication: EPILEPSY
     Route: 048
     Dates: start: 2010
  2. PROZAC [Suspect]
     Indication: DEPRESSION
     Route: 065
  3. ANTIBIOTIC [Suspect]
     Indication: PRODUCT USED FOR UNKNOWN INDICATION
     Route: 065
     Dates: start: 201210

REACTIONS (6)
  - Suicide attempt [Not Recovered/Not Resolved]
  - Convulsion [Unknown]
  - Petechiae [Unknown]
  - Rash [Unknown]
  - Drug ineffective [Unknown]
  - Drug administration error [Unknown]
